FAERS Safety Report 12769958 (Version 3)
Quarter: 2017Q1

REPORT INFORMATION
  Report Type: Spontaneous
  Country: SE (occurrence: SE)
  Receive Date: 20160922
  Receipt Date: 20170111
  Transmission Date: 20170428
  Serious: Yes (Hospitalization, Other)
  Sender: FDA-Public Use
  Company Number: SE-BRISTOL-MYERS SQUIBB COMPANY-BMS-2016-077084

PATIENT
  Age: 71 Year
  Sex: Female

DRUGS (1)
  1. OPDIVO [Suspect]
     Active Substance: NIVOLUMAB
     Indication: SQUAMOUS CELL CARCINOMA
     Dosage: UNK
     Route: 065
     Dates: start: 20160218, end: 20160722

REACTIONS (6)
  - C-reactive protein increased [Unknown]
  - Malignant neoplasm progression [Recovering/Resolving]
  - Myocardial infarction [Unknown]
  - Hypothyroidism [Unknown]
  - Stent placement [Unknown]
  - Infection [Unknown]

NARRATIVE: CASE EVENT DATE: 20160424
